FAERS Safety Report 7541031-2 (Version None)
Quarter: 2011Q2

REPORT INFORMATION
  Report Type: 
  Country: None (occurrence: None)
  Receive Date: 20110610
  Receipt Date: 20100713
  Transmission Date: 20111010
  Serious: No
  Sender: FDA-Public Use
  Company Number: A0870666A

PATIENT
  Age: 36 Year
  Sex: Female

DRUGS (1)
  1. ALTABAX [Suspect]
     Route: 065

REACTIONS (7)
  - IMPAIRED HEALING [None]
  - SWELLING [None]
  - PAIN [None]
  - ADVERSE REACTION [None]
  - ERYTHEMA [None]
  - BURNING SENSATION [None]
  - HYPERSENSITIVITY [None]
